FAERS Safety Report 10139158 (Version 1)
Quarter: 2014Q2

REPORT INFORMATION
  Report Type: Spontaneous
  Country: US (occurrence: US)
  Receive Date: 20140429
  Receipt Date: 20140429
  Transmission Date: 20141212
  Serious: Yes (Hospitalization)
  Sender: FDA-Public Use
  Company Number: US-SA-2014SA051697

PATIENT
  Age: 78 Year
  Sex: Female

DRUGS (3)
  1. PLAVIX [Suspect]
     Indication: PRODUCT USED FOR UNKNOWN INDICATION
     Route: 065
  2. NASAL SPRAY [Concomitant]
     Indication: LUNG DISORDER
  3. CARDIAC THERAPY [Concomitant]

REACTIONS (2)
  - Cardiac operation [Unknown]
  - Confusional state [Unknown]
